FAERS Safety Report 23704487 (Version 3)
Quarter: 2024Q3

REPORT INFORMATION
  Report Type: Spontaneous
  Country: US (occurrence: US)
  Receive Date: 20240404
  Receipt Date: 20240802
  Transmission Date: 20241016
  Serious: Yes (Hospitalization)
  Sender: SANOFI AVENTIS
  Company Number: US-SA-SAC20240402000283

PATIENT
  Age: 32 Year
  Sex: Male

DRUGS (1)
  1. DUPIXENT [Suspect]
     Active Substance: DUPILUMAB
     Indication: Dermatitis
     Dosage: 300 MG, QOW
     Route: 058
     Dates: end: 2024

REACTIONS (14)
  - Pharyngitis bacterial [Unknown]
  - Feeding disorder [Unknown]
  - Fluid intake reduced [Unknown]
  - Injection site reaction [Unknown]
  - Nausea [Unknown]
  - Cough [Recovered/Resolved]
  - Oropharyngeal pain [Not Recovered/Not Resolved]
  - Injection site pain [Unknown]
  - Skin fissures [Not Recovered/Not Resolved]
  - Scratch [Recovering/Resolving]
  - Skin discolouration [Recovering/Resolving]
  - Pruritus [Recovering/Resolving]
  - Dry skin [Recovering/Resolving]
  - Product use in unapproved indication [Unknown]

NARRATIVE: CASE EVENT DATE: 20240101
